FAERS Safety Report 6993958-8 (Version None)
Quarter: 2010Q3

REPORT INFORMATION
  Report Type: 
  Country: None (occurrence: None)
  Receive Date: 20100917
  Receipt Date: 20091228
  Transmission Date: 20110219
  Serious: No
  Sender: FDA-Public Use
  Company Number: US-ASTRAZENECA-2007UW05615

PATIENT
  Age: 27 Year
  Sex: Male
  Weight: 99.8 kg

DRUGS (10)
  1. SEROQUEL [Suspect]
     Indication: SLEEP DISORDER
     Dosage: 100MG TO 600 MG
     Route: 048
     Dates: start: 20040301, end: 20060501
  2. SEROQUEL [Suspect]
     Indication: SCHIZOAFFECTIVE DISORDER
     Dosage: 100MG TO 600 MG
     Route: 048
     Dates: start: 20040301, end: 20060501
  3. SEROQUEL [Suspect]
     Indication: BIPOLAR DISORDER
     Dosage: 100MG TO 600 MG
     Route: 048
     Dates: start: 20040301, end: 20060501
  4. ZYPREXA [Concomitant]
     Indication: ANXIETY
     Dates: start: 20040101, end: 20050101
  5. ABILIFY [Concomitant]
  6. GEODON [Concomitant]
  7. TRILAFON [Concomitant]
     Dates: start: 20080101, end: 20090201
  8. TRIAVIL [Concomitant]
     Dates: start: 20080101, end: 20090201
  9. DEPAKOTE [Concomitant]
     Dates: end: 20080101
  10. RISPERDAL [Concomitant]
     Dates: start: 20040101, end: 20040401

REACTIONS (6)
  - BLOOD CHOLESTEROL INCREASED [None]
  - BLOOD TRIGLYCERIDES INCREASED [None]
  - GYNAECOMASTIA [None]
  - HYPERGLYCAEMIA [None]
  - HYPERTENSION [None]
  - OBESITY [None]
